FAERS Safety Report 6245862-0 (Version None)
Quarter: 2009Q2

REPORT INFORMATION
  Report Type: 
  Country: None (occurrence: None)
  Receive Date: 20090626
  Receipt Date: 20090618
  Transmission Date: 20091009
  Serious: Yes (Hospitalization)
  Sender: FDA-Public Use
  Company Number: AU-BRISTOL-MYERS SQUIBB COMPANY-14651426

PATIENT
  Age: 58 Year
  Sex: Female

DRUGS (1)
  1. ABATACEPT [Suspect]
     Indication: COLITIS ULCERATIVE
     Dosage: NO OF COURSE:25
     Route: 042
     Dates: start: 20070530, end: 20090429

REACTIONS (2)
  - COLITIS ULCERATIVE [None]
  - LISTERIOSIS [None]
